FAERS Safety Report 5327450-3 (Version None)
Quarter: 2007Q2

REPORT INFORMATION
  Report Type: 
  Country: None (occurrence: None)
  Receive Date: 20070517
  Receipt Date: 20070129
  Transmission Date: 20071010
  Serious: Yes (Hospitalization)
  Sender: FDA-Public Use
  Company Number: US-JNJFOC-20070104410

PATIENT
  Age: 33 Year
  Sex: Female

DRUGS (2)
  1. TRAMADOL HCL [Suspect]
     Indication: OVERDOSE
     Route: 048
  2. ACETAMINOPHEN AND HYDROCODONE BITARTRATE [Suspect]
     Indication: INTENTIONAL OVERDOSE

REACTIONS (4)
  - AGITATION [None]
  - BLOOD PRESSURE INCREASED [None]
  - INTENTIONAL OVERDOSE [None]
  - SOMNOLENCE [None]
